FAERS Safety Report 5282590-2 (Version None)
Quarter: 2007Q1

REPORT INFORMATION
  Report Type: 
  Country: None (occurrence: None)
  Receive Date: 20070326
  Receipt Date: 20070308
  Transmission Date: 20070707
  Serious: Yes (Life-Threatening, Other)
  Sender: FDA-Public Use
  Company Number: DSA_29557_2007

PATIENT
  Age: 47 Year
  Sex: Female
  Weight: 107.9561 kg

DRUGS (9)
  1. VASOTEC [Suspect]
     Indication: HYPERTENSION
     Dosage: 10 MG Q DAY PO
     Route: 048
     Dates: start: 20070122, end: 20070308
  2. VASOTEC [Suspect]
     Indication: HYPERTENSION
  3. ENALAPRIL MALEATE [Suspect]
     Indication: HYPERTENSION
     Dosage: DF
     Dates: start: 19990101
  4. VASOTEC [Suspect]
     Indication: HYPERTENSION
     Dosage: DF
     Dates: end: 20070121
  5. TENEX [Concomitant]
  6. PROTONIX [Concomitant]
  7. CLARITIN-D [Concomitant]
  8. VITAMIN E [Concomitant]
  9. VITAMIN D [Concomitant]

REACTIONS (6)
  - BLOOD PRESSURE FLUCTUATION [None]
  - CONDITION AGGRAVATED [None]
  - HYPERTENSION [None]
  - PHARMACEUTICAL PRODUCT COMPLAINT [None]
  - THERAPEUTIC RESPONSE UNEXPECTED WITH DRUG SUBSTITUTION [None]
  - TRIGGER FINGER [None]
